FAERS Safety Report 24180546 (Version 1)
Quarter: 2024Q3

REPORT INFORMATION
  Report Type: Spontaneous
  Country: US (occurrence: None)
  Receive Date: 20240805
  Receipt Date: 20240805
  Transmission Date: 20241016
  Serious: Yes (Life-Threatening, Hospitalization, Other)
  Sender: Public
  Company Number: None

PATIENT
  Age: 52 Year
  Sex: Female
  Weight: 121.7 kg

DRUGS (13)
  1. OZEMPIC [Suspect]
     Active Substance: SEMAGLUTIDE
     Indication: Type 2 diabetes mellitus
     Dosage: OTHER FREQUENCY : WEEKLY;?
     Route: 058
     Dates: start: 20240410, end: 20240610
  2. ASPIRIN [Concomitant]
     Active Substance: ASPIRIN
  3. CHOLECALCIFEROL [Concomitant]
     Active Substance: CHOLECALCIFEROL
  4. VITAMIN B12 [Concomitant]
     Active Substance: CYANOCOBALAMIN
  5. DULOXETINE [Concomitant]
     Active Substance: DULOXETINE
  6. FUROSEMIDE [Concomitant]
     Active Substance: FUROSEMIDE
  7. METFORMIN [Concomitant]
     Active Substance: METFORMIN HYDROCHLORIDE
  8. METHOCARBAMOL [Concomitant]
     Active Substance: METHOCARBAMOL
  9. METOCLOPRAMIDE [Concomitant]
     Active Substance: METOCLOPRAMIDE
  10. PREDNISONE [Concomitant]
     Active Substance: PREDNISONE
  11. LYRICA [Concomitant]
     Active Substance: PREGABALIN
  12. TACROLIMUS [Concomitant]
     Active Substance: TACROLIMUS
  13. VITAMIN A [Concomitant]
     Active Substance: VITAMIN A

REACTIONS (8)
  - Hypophagia [None]
  - Asthenia [None]
  - Fatigue [None]
  - Diarrhoea [None]
  - Anal incontinence [None]
  - Abdominal pain [None]
  - Complicated appendicitis [None]
  - Weight decreased [None]

NARRATIVE: CASE EVENT DATE: 20240614
